FAERS Safety Report 7361237-5 (Version None)
Quarter: 2011Q1

REPORT INFORMATION
  Report Type: 
  Country: None (occurrence: None)
  Receive Date: 20110318
  Receipt Date: 20110311
  Transmission Date: 20110831
  Serious: Yes (Hospitalization, Other)
  Sender: FDA-Public Use
  Company Number: US-SANOFI-AVENTIS-2011SA015817

PATIENT
  Age: 58 Year
  Sex: Female

DRUGS (2)
  1. OPTICLICK [Suspect]
     Indication: INSULIN-REQUIRING TYPE 2 DIABETES MELLITUS
  2. LANTUS [Suspect]
     Indication: INSULIN-REQUIRING TYPE 2 DIABETES MELLITUS
     Dosage: 47 TO 80 UNITS
     Route: 058

REACTIONS (3)
  - CORONARY ARTERIAL STENT INSERTION [None]
  - DIABETIC ULCER [None]
  - SINUS HEADACHE [None]
